FAERS Safety Report 5803934-6 (Version None)
Quarter: 2008Q3

REPORT INFORMATION
  Report Type: 
  Country: None (occurrence: None)
  Receive Date: 20080708
  Receipt Date: 20080626
  Transmission Date: 20090109
  Serious: Yes (Hospitalization, Other)
  Sender: FDA-Public Use
  Company Number: DE-PFIZER INC-2008054071

PATIENT
  Sex: Female

DRUGS (17)
  1. LYRICA [Suspect]
     Indication: NEURALGIA
     Route: 048
     Dates: start: 20080425, end: 20080426
  2. CARBAMAZEPINE [Concomitant]
  3. OPIOIDS [Concomitant]
  4. HYDROMORPHONE HYDROCHLORIDE [Concomitant]
  5. NEXIUM [Concomitant]
  6. THEOPHYLLINE [Concomitant]
  7. TOREM [Concomitant]
  8. AMITRIPTYLINE HCL [Concomitant]
  9. TEGRETOL [Concomitant]
  10. DECORTIN-H [Concomitant]
  11. MOVICOL [Concomitant]
  12. IDEOS [Concomitant]
  13. GYNOKADIN TABLET [Concomitant]
  14. OTHER ANTI-ASTHMATICS, INHALANTS [Concomitant]
     Route: 055
  15. BUDESONIDE [Concomitant]
     Route: 055
  16. SPIRIVA [Concomitant]
     Route: 055
  17. ACETAMINOPHEN [Concomitant]

REACTIONS (3)
  - ASTHENIA [None]
  - DRUG INTOLERANCE [None]
  - TREMOR [None]
